FAERS Safety Report 10269642 (Version 2)
Quarter: 2014Q2

REPORT INFORMATION
  Report Type: Spontaneous
  Country: US (occurrence: None)
  Receive Date: 20140612
  Receipt Date: 20140619
  Transmission Date: 20141212
  Serious: Yes (Hospitalization, Other)
  Sender: FDA-Public Use
  Company Number: 003-185

PATIENT
  Age: 52 Year
  Sex: Male

DRUGS (1)
  1. CROFAB [Suspect]
     Indication: SNAKE BITE
     Dates: start: 20140528, end: 20140531

REACTIONS (8)
  - Swelling [None]
  - Oedema [None]
  - Hypoaesthesia [None]
  - Skin discolouration [None]
  - Myalgia [None]
  - Haemoglobin decreased [None]
  - Haematocrit decreased [None]
  - Fibrin D dimer increased [None]
